FAERS Safety Report 25202648 (Version 3)
Quarter: 2025Q2

REPORT INFORMATION
  Report Type: Spontaneous
  Country: JP (occurrence: JP)
  Receive Date: 20250416
  Receipt Date: 20250619
  Transmission Date: 20250716
  Serious: Yes (Death, Other)
  Sender: ABBVIE
  Company Number: JP-ABBVIE-6232669

PATIENT
  Age: 89 Year
  Sex: Male

DRUGS (1)
  1. RINVOQ [Suspect]
     Active Substance: UPADACITINIB
     Indication: Rheumatoid arthritis
     Route: 048
     Dates: start: 20210906

REACTIONS (2)
  - COVID-19 [Fatal]
  - Lymphoma [Unknown]
